FAERS Safety Report 9802983 (Version 1)
Quarter: 2014Q1

REPORT INFORMATION
  Report Type: Spontaneous
  Country: US (occurrence: None)
  Receive Date: 20140106
  Receipt Date: 20140106
  Transmission Date: 20141002
  Serious: No
  Sender: FDA-Public Use
  Company Number: None

PATIENT
  Age: 60 Year
  Sex: Female
  Weight: 65.77 kg

DRUGS (1)
  1. ESCITALOPRAM 10 MG [Suspect]
     Indication: DEPRESSION
     Route: 048
     Dates: start: 20130831, end: 20140104

REACTIONS (2)
  - Product substitution issue [None]
  - Depression [None]
